FAERS Safety Report 4349238-2 (Version None)
Quarter: 2004Q2

REPORT INFORMATION
  Report Type: 
  Country: None (occurrence: None)
  Receive Date: 20040415
  Receipt Date: 20030626
  Transmission Date: 20050107
  Serious: Yes (Disabling, Other)
  Sender: FDA-Public Use
  Company Number: 200310036BBE

PATIENT
  Age: 11 Year
  Sex: Male
  Weight: 76 kg

DRUGS (9)
  1. HELIXATE FS [Suspect]
     Indication: FACTOR VIII DEFICIENCY
     Dosage: INTRAVENOUS
     Route: 042
     Dates: start: 19970101, end: 20030101
  2. HELIXATE FS [Suspect]
     Indication: FACTOR VIII DEFICIENCY
     Dosage: 4000 U, QD, INTRAVENOUS
     Route: 042
     Dates: start: 20030113, end: 20030224
  3. HELIXATE FS [Suspect]
     Dosage: 4000 U, PRN, INTRAVENOUS
     Route: 042
     Dates: start: 20030113, end: 20030224
  4. RECOMBINATE [Suspect]
     Indication: FACTOR VIII DEFICIENCY
     Dosage: INTRAVENOUS
     Route: 042
     Dates: start: 20010101, end: 20030103
  5. KOGENATE [Concomitant]
  6. HYDROCODONE [Concomitant]
  7. VIOXX [Concomitant]
  8. ULTRAM [Concomitant]
  9. FEIBA [Concomitant]

REACTIONS (3)
  - ARTHRALGIA [None]
  - FACTOR VIII INHIBITION [None]
  - HAEMATOMA [None]
